FAERS Safety Report 4563233-X (Version None)
Quarter: 2005Q1

REPORT INFORMATION
  Report Type: 
  Country: None (occurrence: None)
  Receive Date: 20050125
  Receipt Date: 20050113
  Transmission Date: 20050727
  Serious: Yes (Hospitalization)
  Sender: FDA-Public Use
  Company Number: CH-2005-000910

PATIENT
  Age: 67 Year
  Sex: Male

DRUGS (9)
  1. SOTALOL HCL [Suspect]
     Indication: ATRIAL FIBRILLATION
     Dosage: 80 MG, 2X/DAY, ORAL
     Route: 048
  2. TIZANIDINE HCL [Suspect]
     Indication: MUSCLE SPASMS
     Dosage: 4 MG, 1X/DAY, ORAL
     Route: 048
  3. TRANSTEC TTS (BUPRENORPHINE) [Concomitant]
  4. TOREM (TORASEMIDE) [Concomitant]
  5. PLAVIX [Concomitant]
  6. ACETAMINOPHEN [Concomitant]
  7. ZESTRIL [Concomitant]
  8. BUPRENORPHINE HCL [Concomitant]
  9. ASPIRIN [Concomitant]

REACTIONS (2)
  - DELIRIUM [None]
  - HALLUCINATION, AUDITORY [None]
